FAERS Safety Report 5097298-6 (Version None)
Quarter: 2006Q3

REPORT INFORMATION
  Report Type: 
  Country: None (occurrence: None)
  Receive Date: 20060901
  Receipt Date: 20060821
  Transmission Date: 20061208
  Serious: Yes (Other)
  Sender: FDA-Public Use
  Company Number: 229014

PATIENT
  Age: 58 Year
  Sex: Male

DRUGS (4)
  1. MABTHERA (RITUXIMAB) CONC FOR SOLUTION FOR INFUSION [Suspect]
     Indication: RHEUMATOID ARTHRITIS
     Dosage: 1 G
  2. NEURONTIN [Concomitant]
  3. PLAVIX [Concomitant]
  4. PREDNISONE TAB [Concomitant]

REACTIONS (1)
  - PULMONARY EMBOLISM [None]
